FAERS Safety Report 23069260 (Version 1)
Quarter: 2023Q4

REPORT INFORMATION
  Report Type: Spontaneous
  Country: FR (occurrence: FR)
  Receive Date: 20231016
  Receipt Date: 20231016
  Transmission Date: 20240110
  Serious: Yes (Other)
  Sender: FDA-Public Use
  Company Number: FR-009507513-2309FRA009413

PATIENT
  Age: 49 Year
  Sex: Female

DRUGS (5)
  1. EPIRUBICIN HYDROCHLORIDE [Suspect]
     Active Substance: EPIRUBICIN HYDROCHLORIDE
     Indication: Triple negative breast cancer
     Dosage: UNK
  2. CARBOPLATIN [Suspect]
     Active Substance: CARBOPLATIN
     Indication: Triple negative breast cancer
     Dosage: UNK
  3. PACLITAXEL [Suspect]
     Active Substance: PACLITAXEL
     Indication: Triple negative breast cancer
  4. CYCLOPHOSPHAMIDE [Suspect]
     Active Substance: CYCLOPHOSPHAMIDE
     Indication: Triple negative breast cancer
     Dosage: UNK
  5. KEYTRUDA [Suspect]
     Active Substance: PEMBROLIZUMAB
     Indication: Triple negative breast cancer

REACTIONS (9)
  - Immune-mediated hypophysitis [Recovering/Resolving]
  - Bone marrow failure [Recovering/Resolving]
  - N-terminal prohormone brain natriuretic peptide increased [Recovering/Resolving]
  - Asthenia [Recovering/Resolving]
  - Hypotension [Recovering/Resolving]
  - Chest pain [Recovering/Resolving]
  - Troponin increased [Recovering/Resolving]
  - Cortisol decreased [Recovering/Resolving]
  - Off label use [Recovering/Resolving]
